FAERS Safety Report 22029320 (Version 2)
Quarter: 2023Q1

REPORT INFORMATION
  Report Type: Spontaneous
  Country: US (occurrence: US)
  Receive Date: 20230223
  Receipt Date: 20230306
  Transmission Date: 20230417
  Serious: Yes (Other)
  Sender: FDA-Public Use
  Company Number: US-TEVA-2023-US-2857488

PATIENT
  Age: 11 Year
  Sex: Male

DRUGS (10)
  1. AMOXICILLIN [Suspect]
     Active Substance: AMOXICILLIN
     Indication: Staphylococcal infection
     Route: 065
  2. AMOXICILLIN [Suspect]
     Active Substance: AMOXICILLIN
     Indication: Rash
  3. PREDNISONE [Suspect]
     Active Substance: PREDNISONE
     Indication: Rash
     Route: 065
  4. PREDNISONE [Suspect]
     Active Substance: PREDNISONE
     Indication: Pleural effusion
     Dosage: 40-60MG DAILY
     Route: 048
  5. PREDNISONE [Suspect]
     Active Substance: PREDNISONE
     Dosage: ON DISCHARGE, 50 MG
     Route: 048
  6. PREDNISONE [Suspect]
     Active Substance: PREDNISONE
     Dosage: DOSE INCREASED ON READMISSIONS
     Route: 048
  7. PREDNISONE [Suspect]
     Active Substance: PREDNISONE
     Dosage: WEANED OFF
     Route: 048
  8. METHYLPREDNISOLONE [Suspect]
     Active Substance: METHYLPREDNISOLONE
     Indication: Pleural effusion
     Dosage: INTERMITTENT PULSES, 1000 MG
     Route: 042
  9. METHYLPREDNISOLONE [Suspect]
     Active Substance: METHYLPREDNISOLONE
     Dosage: HE WAS DISCHARGED FROM THE HOSPITAL ON WEEKLY INTRAVENOUS METHYLPREDNISOLONE PULSES
     Route: 042
  10. METHYLPREDNISOLONE [Suspect]
     Active Substance: METHYLPREDNISOLONE
     Dosage: DOSE INCREASED ON READMISSIONS
     Route: 042

REACTIONS (6)
  - Cushingoid [Unknown]
  - Weight increased [Unknown]
  - Skin striae [Unknown]
  - Hypertension [Unknown]
  - Rash [Recovered/Resolved]
  - Rebound effect [Unknown]
